FAERS Safety Report 7213034-9 (Version None)
Quarter: 2011Q1

REPORT INFORMATION
  Report Type: 
  Country: None (occurrence: None)
  Receive Date: 20110106
  Receipt Date: 20110103
  Transmission Date: 20110831
  Serious: Yes (Other)
  Sender: FDA-Public Use
  Company Number: B0685262A

PATIENT
  Sex: Male
  Weight: 71 kg

DRUGS (2)
  1. AUGMENTIN [Suspect]
     Indication: ANTIBIOTIC PROPHYLAXIS
     Dosage: 1G TWICE PER DAY
     Route: 048
     Dates: start: 20100929, end: 20101003
  2. UNSPECIFIED TREATMENT [Concomitant]
     Route: 065

REACTIONS (5)
  - DEHYDRATION [None]
  - DIARRHOEA [None]
  - WEIGHT DECREASED [None]
  - ABDOMINAL PAIN [None]
  - CLOSTRIDIUM DIFFICILE COLITIS [None]
